FAERS Safety Report 7704517-3 (Version None)
Quarter: 2011Q3

REPORT INFORMATION
  Report Type: 
  Country: None (occurrence: None)
  Receive Date: 20110823
  Receipt Date: 20110817
  Transmission Date: 20111222
  Serious: Yes (Hospitalization)
  Sender: FDA-Public Use
  Company Number: US-ABBOTT-11P-163-0847496-00

PATIENT
  Sex: Male
  Weight: 120.31 kg

DRUGS (2)
  1. HUMIRA [Suspect]
     Indication: PRODUCT USED FOR UNKNOWN INDICATION
     Dates: start: 20100401
  2. INFLIXIMAB [Suspect]
     Indication: PSORIASIS
     Dosage: LYOPHILIZED POWDER
     Route: 042
     Dates: start: 20080901, end: 20081001

REACTIONS (1)
  - AORTIC ANEURYSM RUPTURE [None]
